FAERS Safety Report 7230551-6 (Version None)
Quarter: 2011Q1

REPORT INFORMATION
  Report Type: 
  Country: None (occurrence: None)
  Receive Date: 20110118
  Receipt Date: 20110106
  Transmission Date: 20110831
  Serious: Yes (Other)
  Sender: FDA-Public Use
  Company Number: PHHY2010US82854

PATIENT
  Sex: Female

DRUGS (1)
  1. GILENYA [Suspect]
     Indication: MULTIPLE SCLEROSIS
     Dosage: 0.5 MG, QD
     Route: 048
     Dates: start: 20101122

REACTIONS (7)
  - SINUS CONGESTION [None]
  - NASOPHARYNGITIS [None]
  - COUGH [None]
  - PAIN [None]
  - UPPER RESPIRATORY TRACT INFECTION [None]
  - RHINORRHOEA [None]
  - OROPHARYNGEAL PAIN [None]
